FAERS Safety Report 9469780 (Version 2)
Quarter: 2013Q3

REPORT INFORMATION
  Report Type: Spontaneous
  Country: US (occurrence: US)
  Receive Date: 20130822
  Receipt Date: 20130918
  Transmission Date: 20140515
  Serious: No
  Sender: FDA-Public Use
  Company Number: US-009507513-1308USA009019

PATIENT
  Sex: Female

DRUGS (3)
  1. HYZAAR [Suspect]
     Dosage: UNK, QD,HYZAAR TABLET 50 MG-12.5 MG 1 STANDARD PACKAGE BOTTLE OF 10, OVAL SHAPED
     Route: 048
     Dates: start: 201112
  2. HYDROCODONE [Concomitant]
  3. ACETAMINOPHEN [Concomitant]

REACTIONS (1)
  - Palpitations [Unknown]
